FAERS Safety Report 5128110-4 (Version None)
Quarter: 2006Q4

REPORT INFORMATION
  Report Type: 
  Country: None (occurrence: None)
  Receive Date: 20061011
  Receipt Date: 20060925
  Transmission Date: 20070319
  Serious: Yes (Life-Threatening, Hospitalization)
  Sender: FDA-Public Use
  Company Number: DSA_28618_2006

PATIENT
  Age: 37 Year
  Sex: Male

DRUGS (7)
  1. TAVOR      /00273201/ [Suspect]
     Dosage: 30 TAB ONCE PO
     Route: 048
     Dates: start: 20060817, end: 20060817
  2. VENLAFAXINE HCL [Suspect]
     Dosage: 3000 MG ONCE PO
     Route: 048
     Dates: start: 20060817, end: 20060817
  3. AMITRIPTYLINE HCL [Suspect]
     Dosage: 1200 MG ONCE PO
     Route: 048
     Dates: start: 20060817, end: 20060817
  4. CLOMIPRAMINE HCL [Suspect]
     Dosage: 80 TAB ONCE PO
     Route: 048
     Dates: start: 20060817, end: 20060817
  5. REBOXETINE [Suspect]
     Dosage: 320 MG ONCE PO
     Route: 048
     Dates: start: 20060817, end: 20060817
  6. TILIDINE [Suspect]
     Dosage: 10 TAB ONCE PO
     Route: 048
     Dates: start: 20060817, end: 20060817
  7. ALCOHOL [Suspect]
     Dosage: DF ONCE PO
     Route: 048
     Dates: start: 20060817, end: 20060817

REACTIONS (10)
  - ALCOHOL USE [None]
  - BLOOD GASES ABNORMAL [None]
  - HEPATIC ENZYME INCREASED [None]
  - MULTIPLE DRUG OVERDOSE INTENTIONAL [None]
  - PNEUMONIA PRIMARY ATYPICAL [None]
  - RHABDOMYOLYSIS [None]
  - SOMNOLENCE [None]
  - SUICIDE ATTEMPT [None]
  - TACHYCARDIA [None]
  - VOMITING [None]
